FAERS Safety Report 4305579-6 (Version None)
Quarter: 2004Q1

REPORT INFORMATION
  Report Type: 
  Country: None (occurrence: None)
  Receive Date: 20040226
  Receipt Date: 20031204
  Transmission Date: 20041129
  Serious: No
  Sender: FDA-Public Use
  Company Number: US-BRISTOL-MYERS SQUIBB COMPANY-12450763

PATIENT
  Age: 17 Year
  Sex: Female
  Weight: 51 kg

DRUGS (3)
  1. ABILIFY [Suspect]
     Dosage: INITIATED AT 5 MG/DAY; INCREASED TO 15 MG/DAY; DECREASED TO 7.5 MG/DAY.
     Route: 048
     Dates: start: 20031106
  2. ADDERALL 10 [Concomitant]
  3. LAMICTAL [Concomitant]

REACTIONS (3)
  - APATHY [None]
  - SOMNOLENCE [None]
  - WEIGHT INCREASED [None]
